FAERS Safety Report 5487726-6 (Version None)
Quarter: 2007Q4

REPORT INFORMATION
  Report Type: 
  Country: None (occurrence: None)
  Receive Date: 20071001
  Receipt Date: 20070123
  Transmission Date: 20080405
  Serious: Yes (Other)
  Sender: FDA-Public Use
  Company Number: T200700082

PATIENT
  Age: 51 Year
  Sex: Female
  Weight: 83.9 kg

DRUGS (13)
  1. MORPHINE EXTENDED RELEASE [Suspect]
     Indication: PAIN
     Dosage: 30 MG, BID, ORAL
     Route: 048
     Dates: start: 20030101, end: 20070118
  2. ALBUTEROL [Concomitant]
  3. KLONOPIN [Concomitant]
  4. TICLID [Concomitant]
  5. PAXIL [Concomitant]
  6. NEXIUM [Concomitant]
  7. DESYREL [Concomitant]
  8. MAXZIDE [Concomitant]
  9. BUMEX [Concomitant]
  10. TOPAMAX [Concomitant]
  11. KALMA                   (TRYPTOPHAN, L-) [Concomitant]
  12. ZYRTEC [Concomitant]
  13. MORPHINE SULFATE [Concomitant]

REACTIONS (2)
  - ANAPHYLACTIC REACTION [None]
  - RASH [None]
